FAERS Safety Report 18410374 (Version 1)
Quarter: 2020Q4

REPORT INFORMATION
  Report Type: Spontaneous
  Country: US (occurrence: US)
  Receive Date: 20201021
  Receipt Date: 20201021
  Transmission Date: 20210114
  Serious: Yes (Other)
  Sender: FDA-Public Use
  Company Number: None

PATIENT
  Age: 72 Year
  Sex: Female
  Weight: 97.8 kg

DRUGS (10)
  1. AMLODIPINE 5 MG PO [Concomitant]
     Dates: start: 20201020
  2. ACETAMINOPHEN 650 MG PO [Concomitant]
     Dates: start: 20201020
  3. REMDESIVIR FOR INJECTION [Suspect]
     Active Substance: REMDESIVIR
     Indication: COVID-19
     Route: 042
     Dates: start: 20201020, end: 20201021
  4. DEXAMETHASONE 6 MG PO [Concomitant]
     Dates: start: 20201020
  5. HEPARIN 5000 UNIT SQ [Concomitant]
     Dates: start: 20201019
  6. POTASSIUM CHLORIDE 40 MEQ PO [Concomitant]
     Dates: start: 20201019
  7. AZITHROMYCIN 500 MG IV [Concomitant]
     Dates: start: 20201019, end: 20201020
  8. CEFTRIAXONE 1000 MG IV [Concomitant]
     Dates: start: 20201019, end: 20201020
  9. BENZONATATE 200 MG PO [Concomitant]
     Dates: start: 20201020
  10. ASPIRIN 81 MG PO [Concomitant]
     Dates: start: 20201020

REACTIONS (1)
  - Bradycardia [None]

NARRATIVE: CASE EVENT DATE: 20201021
